FAERS Safety Report 9790105 (Version 2)
Quarter: 2014Q1

REPORT INFORMATION
  Report Type: Spontaneous
  Country: US (occurrence: US)
  Receive Date: 20131231
  Receipt Date: 20140127
  Transmission Date: 20141002
  Serious: No
  Sender: FDA-Public Use
  Company Number: US-009507513-1312USA008743

PATIENT
  Age: 83 Year
  Sex: Female
  Weight: 59.86 kg

DRUGS (4)
  1. OXYTROL FOR WOMEN [Suspect]
     Indication: POLLAKIURIA
     Dosage: UNK, UNKNOWN
     Route: 048
     Dates: start: 201311
  2. OXYTROL FOR WOMEN [Suspect]
     Indication: NOCTURIA
  3. ADVAIR [Concomitant]
     Indication: CHRONIC OBSTRUCTIVE PULMONARY DISEASE
     Dosage: UNK, UNKNOWN
  4. PLAVIX [Concomitant]
     Indication: TRANSIENT ISCHAEMIC ATTACK
     Dosage: UNK, UNKNOWN

REACTIONS (3)
  - Constipation [Unknown]
  - Drug effect decreased [Unknown]
  - Product packaging issue [Unknown]
